FAERS Safety Report 4299797-3 (Version None)
Quarter: 2004Q1

REPORT INFORMATION
  Report Type: 
  Country: None (occurrence: None)
  Receive Date: 20040219
  Receipt Date: 20031014
  Transmission Date: 20041129
  Serious: Yes (Hospitalization)
  Sender: FDA-Public Use
  Company Number: WAES 0310GBR00127

PATIENT
  Age: 82 Year
  Sex: Female

DRUGS (2)
  1. INDOCIN [Suspect]
     Indication: BACK PAIN
     Route: 048
     Dates: start: 20021212, end: 20030106
  2. MORPHINE [Concomitant]
     Indication: PAIN
     Dates: start: 20021211

REACTIONS (4)
  - CEREBROVASCULAR ACCIDENT [None]
  - DUODENAL ULCER HAEMORRHAGE [None]
  - HAEMATEMESIS [None]
  - METASTASES TO BONE [None]
